FAERS Safety Report 8041097-X (Version None)
Quarter: 2012Q1

REPORT INFORMATION
  Report Type: 
  Country: None (occurrence: None)
  Receive Date: 20120109
  Receipt Date: 20120103
  Transmission Date: 20120608
  Serious: Yes (Other)
  Sender: FDA-Public Use
  Company Number: A0959775A

PATIENT

DRUGS (2)
  1. SLEEPING MEDICATION (FORMULATION UNKNOWN) (SLEEPING MEDICATION) [Suspect]
  2. CALCIUM CARBONATE [Suspect]
     Indication: PRODUCT USED FOR UNKNOWN INDICATION

REACTIONS (1)
  - DRUG DEPENDENCE [None]
